FAERS Safety Report 17839312 (Version 4)
Quarter: 2022Q1

REPORT INFORMATION
  Report Type: Report from Study
  Country: US (occurrence: US)
  Receive Date: 20200529
  Receipt Date: 20220217
  Transmission Date: 20220423
  Serious: Yes (Hospitalization)
  Sender: FDA-Public Use
  Company Number: US-ACADIA PHARMACEUTICALS INC.-ACA-2020-PIM-001685

PATIENT
  Age: 78 Year
  Sex: Female

DRUGS (1)
  1. NUPLAZID [Suspect]
     Active Substance: PIMAVANSERIN TARTRATE
     Indication: Parkinson^s disease
     Dosage: 34 MILLIGRAM, QD
     Route: 048
     Dates: start: 20191127

REACTIONS (5)
  - Rib fracture [Unknown]
  - Fall [Unknown]
  - Delusion [Recovering/Resolving]
  - Dizziness [Unknown]
  - Medical device battery replacement [Unknown]

NARRATIVE: CASE EVENT DATE: 20210326
